FAERS Safety Report 12551616 (Version 1)
Quarter: 2016Q3

REPORT INFORMATION
  Report Type: Spontaneous
  Country: US (occurrence: US)
  Receive Date: 20160713
  Receipt Date: 20160713
  Transmission Date: 20161109
  Serious: No
  Sender: FDA-Public Use
  Company Number: US-BEH-2016070401

PATIENT
  Sex: Female
  Weight: 90.7 kg

DRUGS (48)
  1. HIZENTRA [Suspect]
     Active Substance: HUMAN IMMUNOGLOBULIN G
     Indication: IMMUNODEFICIENCY
     Dosage: UNK
     Route: 058
  2. SINGULAIR [Concomitant]
     Active Substance: MONTELUKAST SODIUM
  3. CARDIZEM LA [Concomitant]
     Active Substance: DILTIAZEM HYDROCHLORIDE
  4. PROAIR HFA [Concomitant]
     Active Substance: ALBUTEROL SULFATE
  5. GABAPENTIN. [Concomitant]
     Active Substance: GABAPENTIN
  6. ZOCOR [Concomitant]
     Active Substance: SIMVASTATIN
  7. TUSSIONEX                          /00004701/ [Concomitant]
     Active Substance: BROMHEXINE
  8. BENEFIBER                          /00677201/ [Concomitant]
     Active Substance: ICODEXTRIN
  9. LINZESS [Concomitant]
     Active Substance: LINACLOTIDE
  10. TEA, GREEN [Concomitant]
     Active Substance: GREEN TEA LEAF
  11. BENADRYL [Concomitant]
     Active Substance: DIPHENHYDRAMINE HYDROCHLORIDE
  12. DOXYCYCLINE. [Concomitant]
     Active Substance: DOXYCYCLINE
  13. EPIPEN [Concomitant]
     Active Substance: EPINEPHRINE
  14. AMOXICILLIN. [Concomitant]
     Active Substance: AMOXICILLIN
  15. COUMADIN [Concomitant]
     Active Substance: WARFARIN SODIUM
  16. PERCOCET                           /00446701/ [Concomitant]
     Active Substance: ACETAMINOPHEN\OXYCODONE HYDROCHLORIDE\OXYCODONE TEREPHTHALATE
  17. FEXOFENADINE [Concomitant]
     Active Substance: FEXOFENADINE\FEXOFENADINE HYDROCHLORIDE
  18. LEVALBUTEROL. [Concomitant]
     Active Substance: LEVALBUTEROL
  19. CALCIUM [Concomitant]
     Active Substance: CALCIUM
  20. AMITIZA [Concomitant]
     Active Substance: LUBIPROSTONE
  21. HIZENTRA [Suspect]
     Active Substance: HUMAN IMMUNOGLOBULIN G
     Indication: IMMUNODEFICIENCY COMMON VARIABLE
     Dosage: UNK
     Route: 058
  22. VALTREX [Concomitant]
     Active Substance: VALACYCLOVIR HYDROCHLORIDE
  23. SYMBICORT [Concomitant]
     Active Substance: BUDESONIDE\FORMOTEROL FUMARATE DIHYDRATE
  24. RESTORIL [Concomitant]
     Active Substance: TEMAZEPAM
  25. XARELTO [Concomitant]
     Active Substance: RIVAROXABAN
  26. LASIX [Concomitant]
     Active Substance: FUROSEMIDE
  27. COLACE [Concomitant]
     Active Substance: DOCUSATE SODIUM
  28. MIRAPEX [Concomitant]
     Active Substance: PRAMIPEXOLE DIHYDROCHLORIDE
  29. FLONASE [Concomitant]
     Active Substance: FLUTICASONE PROPIONATE
  30. LISINOPRIL. [Concomitant]
     Active Substance: LISINOPRIL
  31. AMBIEN [Concomitant]
     Active Substance: ZOLPIDEM TARTRATE
  32. POTASSIUM [Concomitant]
     Active Substance: POTASSIUM
  33. HIZENTRA [Suspect]
     Active Substance: HUMAN IMMUNOGLOBULIN G
     Dosage: 10 G, QW
     Route: 058
  34. TRAMADOL. [Concomitant]
     Active Substance: TRAMADOL
  35. XANAX [Concomitant]
     Active Substance: ALPRAZOLAM
  36. PREDNISONE. [Concomitant]
     Active Substance: PREDNISONE
  37. MUCINEX [Concomitant]
     Active Substance: GUAIFENESIN
  38. PHRENILIN [Concomitant]
     Active Substance: ACETAMINOPHEN\BUTALBITAL
  39. CYMBALTA [Concomitant]
     Active Substance: DULOXETINE HYDROCHLORIDE
  40. VIBRAMYCIN [Concomitant]
     Active Substance: DOXYCYCLINE
  41. PANTOPRAZOLE [Concomitant]
     Active Substance: PANTOPRAZOLE SODIUM
  42. LIPITOR [Concomitant]
     Active Substance: ATORVASTATIN CALCIUM
  43. RIZATRIPTAN. [Concomitant]
     Active Substance: RIZATRIPTAN
  44. MULTIVITAMINS [Concomitant]
     Active Substance: VITAMINS
  45. TYLENOL EXTRA STRENGTH [Concomitant]
     Active Substance: ACETAMINOPHEN
  46. XOPENEX [Concomitant]
     Active Substance: LEVALBUTEROL HYDROCHLORIDE
  47. ALENDRONATE SODIUM. [Concomitant]
     Active Substance: ALENDRONATE SODIUM
  48. MIRALAX [Concomitant]
     Active Substance: POLYETHYLENE GLYCOL 3350

REACTIONS (1)
  - Upper respiratory tract infection [Unknown]
